FAERS Safety Report 11774512 (Version 2)
Quarter: 2015Q4

REPORT INFORMATION
  Report Type: Spontaneous
  Country: US (occurrence: US)
  Receive Date: 20151124
  Receipt Date: 20151124
  Transmission Date: 20160304
  Serious: No
  Sender: FDA-Public Use
  Company Number: US-MALLINCKRODT-T201500056

PATIENT
  Sex: Male

DRUGS (2)
  1. GABLOFEN [Suspect]
     Active Substance: BACLOFEN
     Dosage: 315.3 MCG/DAY
     Dates: start: 20141126, end: 20141202
  2. GABLOFEN [Suspect]
     Active Substance: BACLOFEN
     Indication: MUSCLE SPASTICITY
     Dosage: 313.2 MCG/DAY (2000 MCG/ML)
     Route: 037
     Dates: end: 20141126

REACTIONS (4)
  - Discomfort [Recovered/Resolved]
  - Muscle tightness [Recovered/Resolved]
  - Muscle spasticity [Recovered/Resolved]
  - Posture abnormal [Recovered/Resolved]

NARRATIVE: CASE EVENT DATE: 2014
